FAERS Safety Report 18488140 (Version 1)
Quarter: 2020Q4

REPORT INFORMATION
  Report Type: Spontaneous
  Country: US (occurrence: US)
  Receive Date: 20201110
  Receipt Date: 20201110
  Transmission Date: 20210114
  Serious: Yes (Other)
  Sender: FDA-Public Use
  Company Number: US-JNJFOC-20201100147

PATIENT

DRUGS (2)
  1. VELETRI [Suspect]
     Active Substance: EPOPROSTENOL
     Indication: RIGHT VENTRICULAR FAILURE
  2. VELETRI [Suspect]
     Active Substance: EPOPROSTENOL
     Indication: HYPOXIA

REACTIONS (8)
  - Off label use [Unknown]
  - Product use in unapproved indication [Unknown]
  - Hypotension [Unknown]
  - Pulmonary arterial pressure increased [Unknown]
  - Drug delivery system malfunction [Unknown]
  - Cardiac arrest [Unknown]
  - Hypoxia [Unknown]
  - Central venous pressure [Unknown]
